FAERS Safety Report 5113293-2 (Version None)
Quarter: 2006Q3

REPORT INFORMATION
  Report Type: 
  Country: None (occurrence: None)
  Receive Date: 20060920
  Receipt Date: 20060905
  Transmission Date: 20061208
  Serious: Yes (Death, Hospitalization, Other)
  Sender: FDA-Public Use
  Company Number: US200606003214

PATIENT
  Age: 74 Year
  Sex: Male

DRUGS (10)
  1. HUMULIN 70/30 [Suspect]
     Indication: DIABETES MELLITUS
     Dosage: SEE IMAGE
     Dates: start: 19950101
  2. HUMULIN 70/30 [Suspect]
     Indication: DIABETES MELLITUS
     Dosage: SEE IMAGE
     Dates: start: 19950101
  3. HUMULIN 70/30 [Suspect]
     Indication: DIABETES MELLITUS
     Dosage: SEE IMAGE
     Dates: start: 19950101
  4. GLYBURIDE [Concomitant]
  5. ACTOS [Concomitant]
  6. ASA TABS (ACETYLSALICYLIC ACID) [Concomitant]
  7. POTASSIUM CHLORIDE [Concomitant]
  8. LANOXIN [Concomitant]
  9. LASIX [Concomitant]
  10. GLYNASE [Concomitant]

REACTIONS (52)
  - ABDOMINAL PAIN UPPER [None]
  - ACCOMMODATION DISORDER [None]
  - ACTIVITIES OF DAILY LIVING IMPAIRED [None]
  - ACUTE MYOCARDIAL INFARCTION [None]
  - AORTIC VALVE DISEASE [None]
  - ARTERIOVENOUS MALFORMATION [None]
  - ARTHRITIS REACTIVE [None]
  - ASTHENIA [None]
  - BALANCE DISORDER [None]
  - BENIGN PROSTATIC HYPERPLASIA [None]
  - BLOOD CHOLESTEROL INCREASED [None]
  - BLOOD GLUCOSE FLUCTUATION [None]
  - BLOOD TRIGLYCERIDES INCREASED [None]
  - BRONCHITIS [None]
  - BUNDLE BRANCH BLOCK LEFT [None]
  - CARDIAC FAILURE CONGESTIVE [None]
  - CARDIOMEGALY [None]
  - CAROTID ARTERY OCCLUSION [None]
  - CAROTID ARTERY STENOSIS [None]
  - CATARACT [None]
  - CELLULITIS [None]
  - CHRONIC OBSTRUCTIVE PULMONARY DISEASE [None]
  - COLONIC POLYP [None]
  - DIABETIC NEUROPATHY [None]
  - DIARRHOEA [None]
  - DIVERTICULUM [None]
  - ECHOCARDIOGRAM ABNORMAL [None]
  - EJECTION FRACTION DECREASED [None]
  - FLUID OVERLOAD [None]
  - GAIT DISTURBANCE [None]
  - GALLBLADDER DISORDER [None]
  - GENERALISED OEDEMA [None]
  - GLYCOSYLATED HAEMOGLOBIN INCREASED [None]
  - GRIP STRENGTH DECREASED [None]
  - HYPERTENSIVE HEART DISEASE [None]
  - IRON DEFICIENCY ANAEMIA [None]
  - ISCHAEMIC CARDIOMYOPATHY [None]
  - KERATITIS [None]
  - LENS DISORDER [None]
  - LUNG NEOPLASM [None]
  - MASS [None]
  - MITRAL VALVE DISEASE [None]
  - PLEURAL EFFUSION [None]
  - PNEUMONIA [None]
  - PNEUMONITIS [None]
  - PULMONARY CONGESTION [None]
  - PULMONARY MASS [None]
  - PULMONARY OEDEMA [None]
  - TYMPANIC MEMBRANE PERFORATION [None]
  - VISION BLURRED [None]
  - WEIGHT DECREASED [None]
  - WEIGHT INCREASED [None]
